FAERS Safety Report 6292211-8 (Version None)
Quarter: 2009Q3

REPORT INFORMATION
  Report Type: 
  Country: None (occurrence: None)
  Receive Date: 20090731
  Receipt Date: 20090721
  Transmission Date: 20100115
  Serious: Yes (Hospitalization)
  Sender: FDA-Public Use
  Company Number: DE-RANBAXY-2009RR-22537

PATIENT
  Age: 65 Year
  Sex: Female
  Weight: 72 kg

DRUGS (4)
  1. PARACETAMOL [Suspect]
     Indication: INFLUENZA LIKE ILLNESS
     Dosage: 500 MG, BID
     Route: 048
     Dates: start: 20090129, end: 20090202
  2. BROMHEXINE ^BERLIN-CHEMIE^ [Suspect]
     Indication: INFLUENZA LIKE ILLNESS
     Dosage: 8 MG, QID
     Route: 048
     Dates: start: 20090129, end: 20090202
  3. PULMOTIN OINTMENT [Suspect]
     Indication: INFLUENZA LIKE ILLNESS
     Dosage: UNK
     Route: 062
     Dates: start: 20090129, end: 20090202
  4. BISOPROLOL [Concomitant]
     Indication: HYPERTENSION
     Dosage: 2.5 MG, QD
     Route: 048
     Dates: start: 19950101

REACTIONS (1)
  - HYPERSENSITIVITY [None]
